FAERS Safety Report 11445455 (Version 1)
Quarter: 2015Q3

REPORT INFORMATION
  Report Type: Spontaneous
  Country: DE (occurrence: DE)
  Receive Date: 20150902
  Receipt Date: 20150902
  Transmission Date: 20151125
  Serious: Yes (Hospitalization)
  Sender: FDA-Public Use
  Company Number: DE-FERRINGPH-2015FE02897

PATIENT

DRUGS (1)
  1. MINIRIN [Suspect]
     Active Substance: DESMOPRESSIN ACETATE
     Dosage: 0.1 MG
     Route: 048
     Dates: start: 20150811, end: 20150811

REACTIONS (5)
  - Mydriasis [Recovered/Resolved]
  - Pruritus [Recovered/Resolved]
  - Urinary incontinence [Recovered/Resolved]
  - Vision blurred [Recovered/Resolved]
  - Abnormal behaviour [Recovered/Resolved]

NARRATIVE: CASE EVENT DATE: 20150811
